FAERS Safety Report 23257773 (Version 2)
Quarter: 2024Q1

REPORT INFORMATION
  Report Type: Spontaneous
  Country: JP (occurrence: None)
  Receive Date: 20231204
  Receipt Date: 20240102
  Transmission Date: 20240410
  Serious: Yes (Other)
  Sender: FDA-Public Use
  Company Number: JP-ROCHE-3468154

PATIENT
  Age: 54 Year
  Sex: Male

DRUGS (1)
  1. XOFLUZA [Suspect]
     Active Substance: BALOXAVIR MARBOXIL
     Indication: Influenza
     Route: 048
     Dates: start: 20231101, end: 20231101

REACTIONS (3)
  - Eyelid ptosis [Recovered/Resolved]
  - IIIrd nerve paralysis [Recovered/Resolved]
  - Mydriasis [Not Recovered/Not Resolved]
